FAERS Safety Report 23801050 (Version 1)
Quarter: 2024Q2

REPORT INFORMATION
  Report Type: Spontaneous
  Country: US (occurrence: US)
  Receive Date: 20240430
  Receipt Date: 20240430
  Transmission Date: 20240716
  Serious: Yes (Other)
  Sender: FDA-Public Use
  Company Number: US-ABBVIE-5735239

PATIENT
  Age: 67 Year
  Sex: Male
  Weight: 83 kg

DRUGS (10)
  1. MEMANTINE [Suspect]
     Active Substance: MEMANTINE
     Indication: Memory impairment
     Route: 065
     Dates: end: 20240314
  2. MEMANTINE [Suspect]
     Active Substance: MEMANTINE
     Indication: Memory impairment
     Route: 065
     Dates: end: 20240311
  3. ATOMOXETINE [Suspect]
     Active Substance: ATOMOXETINE\ATOMOXETINE HYDROCHLORIDE
     Indication: Disturbance in attention
     Route: 065
     Dates: start: 20240412, end: 20240414
  4. ATOMOXETINE [Suspect]
     Active Substance: ATOMOXETINE\ATOMOXETINE HYDROCHLORIDE
     Indication: Disturbance in attention
     Route: 065
     Dates: end: 20240411
  5. DULOXETINE [Suspect]
     Active Substance: DULOXETINE
     Indication: Neuralgia
     Route: 065
     Dates: end: 20240414
  6. DULOXETINE [Suspect]
     Active Substance: DULOXETINE
     Indication: Neuralgia
     Route: 065
     Dates: start: 20240414
  7. DULOXETINE [Suspect]
     Active Substance: DULOXETINE
     Indication: Neuralgia
     Route: 065
     Dates: end: 20240311
  8. MYORISAN [Suspect]
     Active Substance: ISOTRETINOIN
     Indication: Seborrhoea
     Dosage: FORM STRENGTH: 40 MILLIGRAM
     Route: 048
     Dates: start: 20230901, end: 20240311
  9. AMLODIPINE [Concomitant]
     Active Substance: AMLODIPINE BESYLATE
     Indication: Product used for unknown indication
  10. LISINOPRIL [Concomitant]
     Active Substance: LISINOPRIL
     Indication: Hypertension

REACTIONS (23)
  - Parosmia [Recovered/Resolved]
  - Vision blurred [Recovered/Resolved]
  - Migraine [Not Recovered/Not Resolved]
  - Insomnia [Recovered/Resolved]
  - Tachyphrenia [Recovered/Resolved]
  - Decreased appetite [Recovered/Resolved]
  - Taste disorder [Recovered/Resolved]
  - Neck pain [Recovered/Resolved]
  - Abdominal discomfort [Recovered/Resolved]
  - Pulse abnormal [Recovered/Resolved]
  - Hypertension [Recovered/Resolved]
  - Hallucination, auditory [Recovered/Resolved]
  - Faeces discoloured [Recovered/Resolved]
  - Headache [Not Recovered/Not Resolved]
  - Somniphobia [Recovered/Resolved]
  - Faeces hard [Recovered/Resolved]
  - Palpitations [Recovered/Resolved]
  - Panic attack [Recovered/Resolved]
  - Hallucination, visual [Recovered/Resolved]
  - Nightmare [Recovered/Resolved]
  - Feeling abnormal [Recovered/Resolved]
  - Heart rate increased [Recovered/Resolved]
  - Taste disorder [Recovered/Resolved]

NARRATIVE: CASE EVENT DATE: 20230901
